FAERS Safety Report 5893456-9 (Version None)
Quarter: 2008Q3

REPORT INFORMATION
  Report Type: 
  Country: None (occurrence: None)
  Receive Date: 20080922
  Receipt Date: 20080922
  Transmission Date: 20090109
  Serious: Yes (Hospitalization)
  Sender: FDA-Public Use
  Company Number: None

PATIENT
  Sex: Male
  Weight: 89.8122 kg

DRUGS (5)
  1. TARCEVA [Suspect]
     Indication: RENAL CELL CARCINOMA
     Dosage: 50 MG QOD ORAL
     Route: 048
     Dates: start: 20070301, end: 20080917
  2. SUTENT [Suspect]
     Indication: RENAL CELL CARCINOMA
     Dosage: 50 MG QOD ORAL
     Route: 048
     Dates: start: 20070301, end: 20080917
  3. ACETAMINOPHEN [Concomitant]
  4. AMLODIPINE-OLMESARTAN [Concomitant]
  5. ESOMEPRAZOLE MAGNESIUM [Concomitant]

REACTIONS (2)
  - CHOLECYSTITIS [None]
  - LIPASE INCREASED [None]
